FAERS Safety Report 9284573 (Version 1)
Quarter: 2013Q2

REPORT INFORMATION
  Report Type: Spontaneous
  Country: US (occurrence: US)
  Receive Date: 20130512
  Receipt Date: 20130512
  Transmission Date: 20140414
  Serious: No
  Sender: FDA-Public Use
  Company Number: US-009507513-1305USA003139

PATIENT
  Age: 39 Year
  Sex: Male

DRUGS (1)
  1. SAPHRIS [Suspect]
     Indication: BIPOLAR I DISORDER
     Dosage: 20 MG, BID
     Route: 060
     Dates: start: 201303, end: 20130419

REACTIONS (3)
  - Anger [Unknown]
  - Agitation [Unknown]
  - Overdose [Unknown]
